FAERS Safety Report 23240624 (Version 1)
Quarter: 2023Q4

REPORT INFORMATION
  Report Type: Spontaneous
  Country: GB (occurrence: GB)
  Receive Date: 20231129
  Receipt Date: 20231129
  Transmission Date: 20240109
  Serious: Yes (Other)
  Sender: FDA-Public Use
  Company Number: GB-AMGEN-GBRSP2023210941

PATIENT
  Age: 47 Year
  Sex: Female

DRUGS (1)
  1. ADALIMUMAB [Suspect]
     Active Substance: ADALIMUMAB\ISOPROPYL ALCOHOL
     Indication: Psoriasis
     Dosage: 40 MILLIGRAM, Q2WK (40 MG FORTNIGHTLY)
     Route: 065
     Dates: start: 20230823, end: 20231012

REACTIONS (3)
  - Erythema [Unknown]
  - Swelling face [Unknown]
  - Pruritus [Unknown]
